FAERS Safety Report 8771178 (Version 4)
Quarter: 2012Q4

REPORT INFORMATION
  Report Type: Report from Study
  Country: CO (occurrence: CO)
  Receive Date: 20120906
  Receipt Date: 20121023
  Transmission Date: 20130627
  Serious: Yes (Hospitalization, Other)
  Sender: FDA-Public Use
  Company Number: CO-ROCHE-1109763

PATIENT
  Age: 57 Year
  Sex: Male

DRUGS (1)
  1. MYCOPHENOLATE MOFETIL [Suspect]
     Indication: HEART TRANSPLANT
     Route: 048
     Dates: start: 20031122

REACTIONS (4)
  - Diarrhoea [Recovered/Resolved]
  - Quadriplegia [Recovered/Resolved]
  - Large intestine perforation [Recovered/Resolved]
  - Intestinal perforation [Recovered/Resolved with Sequelae]
